FAERS Safety Report 5398137-6 (Version None)
Quarter: 2007Q3

REPORT INFORMATION
  Report Type: 
  Country: None (occurrence: None)
  Receive Date: 20070726
  Receipt Date: 20070725
  Transmission Date: 20080115
  Serious: Yes (Hospitalization, Other)
  Sender: FDA-Public Use
  Company Number: US-SHR-US-2007-027216

PATIENT
  Age: 36 Year
  Sex: Female
  Weight: 109 kg

DRUGS (1)
  1. MIRENA [Suspect]
     Indication: CONTRACEPTION
     Dosage: 20 A?G/DAY, CONT
     Route: 015
     Dates: start: 20041201, end: 20070712

REACTIONS (9)
  - ASTHENIA [None]
  - BLOOD BILIRUBIN INCREASED [None]
  - DIZZINESS [None]
  - FATIGUE [None]
  - GENITAL HAEMORRHAGE [None]
  - HEPATIC ENZYME INCREASED [None]
  - PROCEDURAL PAIN [None]
  - THROMBOSIS [None]
  - YELLOW SKIN [None]
